FAERS Safety Report 6821780-1 (Version None)
Quarter: 2010Q3

REPORT INFORMATION
  Report Type: 
  Country: None (occurrence: None)
  Receive Date: 20100707
  Receipt Date: 20100707
  Transmission Date: 20110219
  Serious: Yes (Hospitalization, Other)
  Sender: FDA-Public Use
  Company Number: None

PATIENT
  Age: 58 Year
  Sex: Male
  Weight: 67.7 kg

DRUGS (1)
  1. NITROSTAT [Suspect]
     Indication: CHEST PAIN
     Dosage: 1 TABLET EVERY 5 MIN X 3 SL
     Route: 060
     Dates: start: 20100703, end: 20100703

REACTIONS (2)
  - PARAESTHESIA ORAL [None]
  - PRODUCT SOLUBILITY ABNORMAL [None]
